FAERS Safety Report 7053179-X (Version None)
Quarter: 2010Q4

REPORT INFORMATION
  Report Type: 
  Country: None (occurrence: None)
  Receive Date: 20101020
  Receipt Date: 20101011
  Transmission Date: 20110411
  Serious: Yes (Hospitalization)
  Sender: FDA-Public Use
  Company Number: KP-ASTRAZENECA-2010SE47856

PATIENT
  Age: 25642 Day
  Sex: Female

DRUGS (13)
  1. CRESTOR [Suspect]
     Indication: HYPERLIPIDAEMIA
     Route: 048
     Dates: start: 20050706
  2. WARFARIN SODIUM [Suspect]
     Indication: CORONARY ARTERY DISEASE
     Route: 048
     Dates: start: 20050101, end: 20050725
  3. WARFARIN SODIUM [Suspect]
     Route: 048
     Dates: start: 20050826
  4. CIPLUS [Concomitant]
     Indication: VULVOVAGINITIS
  5. ASPIRIN [Concomitant]
     Indication: CORONARY ARTERY DISEASE
  6. PLAVIX [Concomitant]
     Indication: CORONARY ARTERY DISEASE
  7. ISOSORBIDE DINITRATE [Concomitant]
     Indication: CORONARY ARTERY DISEASE
  8. DILATREND [Concomitant]
     Indication: HYPERTENSION
     Dates: start: 20050415
  9. TANATRIL [Concomitant]
     Indication: HYPERTENSION
  10. FURIX [Concomitant]
     Indication: RENAL FAILURE CHRONIC
  11. MOTILIUM-M [Concomitant]
     Indication: DYSPEPSIA
  12. AMITRIPTYLINE HCL [Concomitant]
     Indication: DEPRESSION
  13. AGION [Concomitant]
     Indication: CONSTIPATION
     Dosage: 6G/PKG

REACTIONS (1)
  - GASTRITIS HAEMORRHAGIC [None]
